FAERS Safety Report 5809702-3 (Version None)
Quarter: 2008Q3

REPORT INFORMATION
  Report Type: 
  Country: None (occurrence: None)
  Receive Date: 20080711
  Receipt Date: 20080711
  Transmission Date: 20090109
  Serious: Yes (Life-Threatening)
  Sender: FDA-Public Use
  Company Number: None

PATIENT
  Age: 64 Year
  Sex: Female
  Weight: 68.0396 kg

DRUGS (2)
  1. METOPROLOL TARTRATE [Suspect]
     Indication: CORONARY ARTERY DISEASE
     Dosage: 1 TABLET 1 TABLET PER DAY PO
     Route: 048
     Dates: start: 20070917, end: 20070920
  2. METOPROLOL TARTRATE [Suspect]
     Indication: HYPERTENSION
     Dosage: 1 TABLET 1 TABLET PER DAY PO
     Route: 048
     Dates: start: 20070917, end: 20070920

REACTIONS (2)
  - NAUSEA [None]
  - VERTIGO [None]
